FAERS Safety Report 15770289 (Version 1)
Quarter: 2018Q4

REPORT INFORMATION
  Report Type: Spontaneous
  Country: US (occurrence: US)
  Receive Date: 20181227
  Receipt Date: 20181227
  Transmission Date: 20190205
  Serious: Yes (Other)
  Sender: FDA-Public Use
  Company Number: None

PATIENT
  Sex: Female

DRUGS (4)
  1. STATINS PAK [Concomitant]
  2. DIAZOXIDE [Concomitant]
     Active Substance: DIAZOXIDE
  3. SULFADIAZINE. [Concomitant]
     Active Substance: SULFADIAZINE
  4. HUMIRA [Suspect]
     Active Substance: ADALIMUMAB
     Indication: PSORIATIC ARTHROPATHY
     Dosage: ?          OTHER FREQUENCY:EVERY WEEK;?
     Route: 058

REACTIONS (2)
  - Therapy cessation [None]
  - Malignant melanoma [None]
